FAERS Safety Report 4801205-8 (Version None)
Quarter: 2005Q4

REPORT INFORMATION
  Report Type: 
  Country: None (occurrence: None)
  Receive Date: 20051011
  Receipt Date: 20051002
  Transmission Date: 20060501
  Serious: No
  Sender: FDA-Public Use
  Company Number: 05H-087-0302821-00

PATIENT
  Age: 80 Year
  Sex: Male
  Weight: 47 kg

DRUGS (13)
  1. 0.25% BUPIVACAINE HCL INJECTION (BUPIVACAINE HCL INJECTION) (BUPIVACAI [Suspect]
     Indication: EPIDURAL ANAESTHESIA
     Dosage: 3  ML, EPIDURAL   ON PERITONEAL CLOSURE
     Route: 008
  2. BUPRENORPHINE (BUPRENORPHINE) [Suspect]
     Indication: EPIDURAL ANAESTHESIA
     Dosage: 0.2 MG/ML, EPIDURAL  ON PERITONEAL CLOSURE
     Route: 008
  3. ATROPINE [Concomitant]
  4. HYDROXYZINE [Concomitant]
  5. 2% MEPIVACAINE (MEPIVACAINE) [Concomitant]
  6. PROPOFOL [Concomitant]
  7. SUCININYLCHOLINE (SUXAMETHONIUM CHLORIDE) [Concomitant]
  8. VECURONIUM (VECURONIUM) [Concomitant]
  9. 60% NITROUS OXIDE (NITROUS OXIDE) [Concomitant]
  10. OXYGEN (OXYGEN) [Concomitant]
  11. DOPAMINE HCL [Concomitant]
  12. 50% NITROUS OXIDE (NITROUS OXIDE) [Concomitant]
  13. FENTANYL [Concomitant]

REACTIONS (9)
  - ARTERIOSPASM CORONARY [None]
  - CARDIAC ARREST [None]
  - CORONARY ARTERY STENOSIS [None]
  - ELECTROCARDIOGRAM ST-T SEGMENT ELEVATION [None]
  - HYPOTENSION [None]
  - POST PROCEDURAL COMPLICATION [None]
  - VENTRICULAR EXTRASYSTOLES [None]
  - VENTRICULAR FIBRILLATION [None]
  - VENTRICULAR TACHYCARDIA [None]
